FAERS Safety Report 5056197-6 (Version None)
Quarter: 2006Q3

REPORT INFORMATION
  Report Type: 
  Country: None (occurrence: None)
  Receive Date: 20060717
  Receipt Date: 20060703
  Transmission Date: 20061208
  Serious: Yes (Life-Threatening, Hospitalization)
  Sender: FDA-Public Use
  Company Number: 2006083386

PATIENT
  Age: 8 Year
  Sex: Male

DRUGS (1)
  1. AMPICILLIN/SULBACTAM (SULBACTAM, AMPICILLIN) [Suspect]
     Indication: DRUG USE FOR UNKNOWN INDICATION
     Dosage: (1 TOTAL),  INTRAVENOUS
     Route: 042

REACTIONS (2)
  - LARYNGEAL OEDEMA [None]
  - LARYNGOSPASM [None]
